FAERS Safety Report 21856994 (Version 4)
Quarter: 2023Q1

REPORT INFORMATION
  Report Type: Report from Study
  Country: US (occurrence: US)
  Receive Date: 20230113
  Receipt Date: 20230314
  Transmission Date: 20230418
  Serious: Yes (Hospitalization, Other)
  Sender: FDA-Public Use
  Company Number: US-NOVOPROD-1010559

PATIENT
  Sex: Female

DRUGS (7)
  1. TACROLIMUS [Concomitant]
     Active Substance: TACROLIMUS
     Dosage: 3 MG PER DAY
     Dates: start: 20221007
  2. TACROLIMUS [Concomitant]
     Active Substance: TACROLIMUS
     Indication: Product used for unknown indication
     Dosage: 3 MG QD, 2 MG QD
  3. TACROLIMUS [Concomitant]
     Active Substance: TACROLIMUS
     Dosage: REDUCED TO 2 MG QD
  4. TACROLIMUS [Concomitant]
     Active Substance: TACROLIMUS
     Dosage: PAUSED FOR 48 HOURS
  5. SEMAGLUTIDE [Suspect]
     Active Substance: SEMAGLUTIDE
     Dosage: 0.5 MG
     Route: 058
     Dates: start: 20221019
  6. SEMAGLUTIDE [Suspect]
     Active Substance: SEMAGLUTIDE
     Dosage: 1 MG
     Route: 058
     Dates: start: 20221123, end: 20221207
  7. SEMAGLUTIDE [Suspect]
     Active Substance: SEMAGLUTIDE
     Indication: Type 2 diabetes mellitus
     Dosage: 0.25 MG
     Route: 058
     Dates: start: 20220914

REACTIONS (9)
  - Impaired gastric emptying [Recovered/Resolved]
  - Drug level increased [Recovered/Resolved]
  - Hypomagnesaemia [Not Recovered/Not Resolved]
  - Neutrophilia [Recovered/Resolved]
  - Leukocytosis [Recovered/Resolved]
  - Asthenia [Recovered/Resolved]
  - Nausea [Recovered/Resolved]
  - Diarrhoea [Recovered/Resolved]
  - Decreased appetite [Not Recovered/Not Resolved]

NARRATIVE: CASE EVENT DATE: 20221201
